FAERS Safety Report 8047770-1 (Version None)
Quarter: 2012Q1

REPORT INFORMATION
  Report Type: 
  Country: None (occurrence: None)
  Receive Date: 20120116
  Receipt Date: 20120110
  Transmission Date: 20120608
  Serious: Yes (Hospitalization)
  Sender: FDA-Public Use
  Company Number: US-TEVA-316566USA

PATIENT
  Sex: Female

DRUGS (10)
  1. GLIPIZIDE [Concomitant]
     Indication: DIABETES MELLITUS
     Route: 048
  2. PROAIR HFA [Suspect]
     Indication: CHRONIC OBSTRUCTIVE PULMONARY DISEASE
  3. INSULIN ASPART [Concomitant]
     Indication: DIABETES MELLITUS
     Dosage: 70/30
     Route: 058
  4. PROAIR HFA [Suspect]
     Indication: ASTHMA
     Route: 055
     Dates: start: 20110501, end: 20110501
  5. THEOPHYLLINE [Concomitant]
     Indication: CHRONIC OBSTRUCTIVE PULMONARY DISEASE
     Route: 048
  6. DULERA (MOMETASONE FUROATE AND FORMOTEROL FUMARATE DIHYDRATE) [Concomitant]
     Indication: CHRONIC OBSTRUCTIVE PULMONARY DISEASE
     Dosage: 2 PUFFS
     Route: 055
  7. PANTOPRAZOLE [Concomitant]
     Indication: FLATULENCE
     Route: 048
  8. IPRATROPIUM BROMIDE [Concomitant]
     Indication: CHRONIC OBSTRUCTIVE PULMONARY DISEASE
  9. PREDNISONE [Concomitant]
     Indication: BRONCHIAL SECRETION RETENTION
     Dosage: 10 MILLIGRAM;
     Route: 048
  10. ALBUTEROL SULFATE AUTOHALER [Concomitant]
     Indication: CHRONIC OBSTRUCTIVE PULMONARY DISEASE

REACTIONS (3)
  - ASTHMA [None]
  - DYSPNOEA [None]
  - DRUG INEFFECTIVE [None]
